FAERS Safety Report 21182752 (Version 3)
Quarter: 2022Q4

REPORT INFORMATION
  Report Type: Spontaneous
  Country: JP (occurrence: JP)
  Receive Date: 20220808
  Receipt Date: 20221006
  Transmission Date: 20230113
  Serious: Yes (Death, Hospitalization, Other)
  Sender: FDA-Public Use
  Company Number: JP-BRISTOL-MYERS SQUIBB COMPANY-2022-086045

PATIENT
  Age: 75 Year
  Sex: Male

DRUGS (4)
  1. VIDAZA [Suspect]
     Active Substance: AZACITIDINE
     Indication: Myelodysplastic syndrome
     Dosage: STARTED ON 07TH JANUARY AND 2ND CYCLE ON 06TH FEBRUARY
     Route: 042
     Dates: start: 20220107
  2. VIDAZA [Suspect]
     Active Substance: AZACITIDINE
     Indication: Metachromatic leukodystrophy
     Route: 042
     Dates: start: 20220206, end: 20220304
  3. HYDREA [Concomitant]
     Active Substance: HYDROXYUREA
     Indication: Product used for unknown indication
     Route: 065
     Dates: start: 20220127
  4. IDARUBICIN HYDROCHLORIDE [Concomitant]
     Active Substance: IDARUBICIN HYDROCHLORIDE
     Indication: Product used for unknown indication
     Dates: start: 20220218

REACTIONS (2)
  - Pneumonia [Fatal]
  - Bone marrow necrosis [Unknown]

NARRATIVE: CASE EVENT DATE: 20220125
